FAERS Safety Report 6290290-5 (Version None)
Quarter: 2009Q3

REPORT INFORMATION
  Report Type: 
  Country: None (occurrence: None)
  Receive Date: 20090730
  Receipt Date: 20090210
  Transmission Date: 20100115
  Serious: No
  Sender: FDA-Public Use
  Company Number: US-BRISTOL-MYERS SQUIBB COMPANY-14501613

PATIENT
  Age: 55 Year
  Sex: Male

DRUGS (3)
  1. COUMADIN [Suspect]
  2. LOVENOX [Suspect]
     Dates: start: 20090107, end: 20090116
  3. FLONASE [Suspect]

REACTIONS (4)
  - EPISTAXIS [None]
  - INJECTION SITE HAEMATOMA [None]
  - INJECTION SITE NODULE [None]
  - WRONG TECHNIQUE IN DRUG USAGE PROCESS [None]
